FAERS Safety Report 5076288-3 (Version None)
Quarter: 2006Q3

REPORT INFORMATION
  Report Type: 
  Country: None (occurrence: None)
  Receive Date: 20060804
  Receipt Date: 20060726
  Transmission Date: 20061208
  Serious: Yes (Other)
  Sender: FDA-Public Use
  Company Number: 200507722

PATIENT
  Age: 50 Year
  Sex: Female
  Weight: 59 kg

DRUGS (4)
  1. BOTOX[R](BOTULINUM TOXIN TYPE A) POWDER FOR INJECTION [Suspect]
     Indication: SKIN WRINKLING
     Dosage: SINGLE, INTRAMUSCULAR
     Route: 030
     Dates: start: 20050301, end: 20050301
  2. BOTOX[R](BOTULINUM TOXIN TYPE A) POWDER FOR INJECTION [Suspect]
     Indication: SKIN WRINKLING
     Dosage: SINGLE, INTRAMUSCULAR
     Route: 030
     Dates: start: 20050701, end: 20050701
  3. IOPIDENE [Concomitant]
  4. ANTIBIOTIC SOLUTION [Concomitant]

REACTIONS (6)
  - CONJUNCTIVITIS [None]
  - DIZZINESS [None]
  - EYE INFLAMMATION [None]
  - EYELID PTOSIS [None]
  - FATIGUE [None]
  - MYASTHENIA GRAVIS [None]
